FAERS Safety Report 23656510 (Version 2)
Quarter: 2024Q1

REPORT INFORMATION
  Report Type: Other
  Country: CN (occurrence: None)
  Receive Date: 20240321
  Receipt Date: 20240329
  Transmission Date: 20240409
  Serious: Yes (Hospitalization)
  Sender: FDA-Public Use
  Company Number: CN-ROCHE-3523886

PATIENT
  Age: 69 Year
  Sex: Female

DRUGS (8)
  1. MYCOPHENOLATE MOFETIL [Suspect]
     Active Substance: MYCOPHENOLATE MOFETIL
     Indication: Prophylaxis against transplant rejection
     Route: 048
  2. TOCILIZUMAB [Suspect]
     Active Substance: TOCILIZUMAB
     Indication: COVID-19
     Route: 065
  3. CYCLOSPORINE [Suspect]
     Active Substance: CYCLOSPORINE
     Indication: Prophylaxis against transplant rejection
     Route: 065
  4. CYCLOSPORINE [Suspect]
     Active Substance: CYCLOSPORINE
     Dosage: EVERY NIGHT
     Route: 065
  5. METHYLPREDNISOLONE [Concomitant]
     Active Substance: METHYLPREDNISOLONE
  6. PREDNISONE ACETATE [Concomitant]
     Active Substance: PREDNISONE ACETATE
  7. ERYTHROPOIETIN [Concomitant]
     Active Substance: ERYTHROPOIETIN
  8. LEUCOGEN [Concomitant]
     Active Substance: LEUCOGEN

REACTIONS (5)
  - COVID-19 [Recovering/Resolving]
  - Cardiac failure [Recovered/Resolved]
  - Acute respiratory distress syndrome [Recovered/Resolved]
  - Acute kidney injury [Recovered/Resolved]
  - Off label use [Unknown]
